FAERS Safety Report 14212758 (Version 1)
Quarter: 2017Q4

REPORT INFORMATION
  Report Type: Spontaneous
  Country: US (occurrence: US)
  Receive Date: 20171122
  Receipt Date: 20171122
  Transmission Date: 20180321
  Serious: Yes (Other)
  Sender: FDA-Public Use
  Company Number: US-PFIZER INC-2017498938

PATIENT
  Age: 70 Year
  Sex: Female
  Weight: 53.97 kg

DRUGS (2)
  1. LYRICA [Suspect]
     Active Substance: PREGABALIN
     Indication: BACK PAIN
     Dates: start: 201607
  2. LYRICA [Suspect]
     Active Substance: PREGABALIN
     Indication: PAIN IN EXTREMITY

REACTIONS (12)
  - Chills [Unknown]
  - Visual impairment [Unknown]
  - Skin striae [Unknown]
  - Gait disturbance [Unknown]
  - Mental impairment [Unknown]
  - Tremor [Unknown]
  - Pain [Unknown]
  - Malaise [Unknown]
  - Weight increased [Unknown]
  - Balance disorder [Unknown]
  - Feeling cold [Unknown]
  - Anxiety [Unknown]
